FAERS Safety Report 15927863 (Version 2)
Quarter: 2019Q1

REPORT INFORMATION
  Report Type: Spontaneous
  Country: US (occurrence: US)
  Receive Date: 20190205
  Receipt Date: 20190219
  Transmission Date: 20190417
  Serious: No
  Sender: FDA-Public Use
  Company Number: US-ALLERGAN-1857267US

PATIENT
  Sex: Female

DRUGS (2)
  1. BOTOX COSMETIC [Suspect]
     Active Substance: ONABOTULINUMTOXINA
     Indication: SKIN WRINKLING
     Dosage: ACTUAL; LESS THAN 10 UNITS
     Route: 030
     Dates: start: 201808, end: 201808
  2. BOTOX [Concomitant]
     Active Substance: ONABOTULINUMTOXINA
     Indication: HYPERHIDROSIS
     Dosage: UNK
     Route: 023

REACTIONS (3)
  - Off label use [Unknown]
  - Skin mass [Not Recovered/Not Resolved]
  - Facial asymmetry [Not Recovered/Not Resolved]
